FAERS Safety Report 9610967 (Version 3)
Quarter: 2015Q3

REPORT INFORMATION
  Report Type: Spontaneous
  Country: US (occurrence: US)
  Receive Date: 20131009
  Receipt Date: 20150713
  Transmission Date: 20151125
  Serious: Yes (Hospitalization)
  Sender: FDA-Public Use
  Company Number: US-MILLENNIUM PHARMACEUTICALS, INC.-2013MPI000525

PATIENT
  Age: 31 Year
  Sex: Female
  Weight: 123 kg

DRUGS (5)
  1. VELCADE [Suspect]
     Active Substance: BORTEZOMIB
     Indication: EVANS SYNDROME
     Dosage: 2.6 MG, 1/WEEK
     Route: 058
     Dates: start: 20130121, end: 20130809
  2. PARACETAMOL [Concomitant]
     Active Substance: ACETAMINOPHEN
     Dosage: 650 MG, UNK
     Route: 048
  3. BENADRYL [Concomitant]
     Active Substance: DIPHENHYDRAMINE HYDROCHLORIDE
     Dosage: 20 MG, UNK
  4. RITUXAN [Concomitant]
     Active Substance: RITUXIMAB
     Dosage: 900 MG, UNK
     Dates: end: 20130816
  5. DECADRON [Concomitant]
     Active Substance: DEXAMETHASONE
     Dosage: 10 MG, UNK

REACTIONS (2)
  - Subcutaneous abscess [Unknown]
  - Product use issue [Unknown]

NARRATIVE: CASE EVENT DATE: 20130823
